FAERS Safety Report 6610533-5 (Version None)
Quarter: 2010Q1

REPORT INFORMATION
  Report Type: 
  Country: None (occurrence: None)
  Receive Date: 20100302
  Receipt Date: 20100219
  Transmission Date: 20100710
  Serious: Yes (Death)
  Sender: FDA-Public Use
  Company Number: US-BAXTER-2010BH002575

PATIENT
  Sex: Female
  Weight: 70 kg

DRUGS (1)
  1. DIANEAL [Suspect]
     Indication: PERITONEAL DIALYSIS
     Route: 033
     Dates: end: 20091109

REACTIONS (3)
  - ARTHRALGIA [None]
  - CARDIOPULMONARY FAILURE [None]
  - CONNECTIVE TISSUE DISORDER [None]
